FAERS Safety Report 17677012 (Version 4)
Quarter: 2020Q3

REPORT INFORMATION
  Report Type: Spontaneous
  Country: TW (occurrence: FR)
  Receive Date: 20200416
  Receipt Date: 20200827
  Transmission Date: 20201102
  Serious: Yes (Hospitalization)
  Sender: FDA-Public Use
  Company Number: PHHY2014TW166180

PATIENT
  Age: 51 Year
  Sex: Female

DRUGS (71)
  1. NEORAL [Suspect]
     Active Substance: CYCLOSPORINE
     Dosage: 50 MG
     Route: 065
     Dates: start: 20121114
  2. ACETAMINOPHEN. [Concomitant]
     Active Substance: ACETAMINOPHEN
     Dosage: 500 MG, Q8H PRN
     Route: 048
     Dates: start: 20120507, end: 20120509
  3. ALLEGRA [Concomitant]
     Active Substance: FEXOFENADINE HYDROCHLORIDE
     Indication: UPPER RESPIRATORY TRACT INFECTION
     Dosage: 60 MG, BID
     Route: 048
     Dates: start: 20111205, end: 20111212
  4. ATORVASTATIN [Concomitant]
     Active Substance: ATORVASTATIN
     Indication: PRODUCT USED FOR UNKNOWN INDICATION
     Dosage: 10 MG, QD
     Route: 048
     Dates: start: 20121212, end: 20130408
  5. BACIDE [Concomitant]
     Indication: INFECTION PROPHYLAXIS
     Dosage: 1 TAB, Q2D
     Route: 065
     Dates: start: 20111120, end: 20111124
  6. CIPROFLOXACIN. [Concomitant]
     Active Substance: CIPROFLOXACIN
     Indication: PRODUCT USED FOR UNKNOWN INDICATION
     Dosage: 400 MG, QD
     Route: 042
     Dates: start: 20120106, end: 20120109
  7. PARMASON [Concomitant]
     Dosage: BID
     Route: 049
     Dates: start: 20120912, end: 20130318
  8. NORVASC [Concomitant]
     Active Substance: AMLODIPINE BESYLATE
     Dosage: 5 MG, QD
     Route: 048
     Dates: start: 20121114, end: 20130306
  9. ULTRACET [Concomitant]
     Active Substance: ACETAMINOPHEN\TRAMADOL HYDROCHLORIDE
     Indication: WOUND COMPLICATION
     Dosage: 1 DF, BID (1 TAB, BID HS)
     Route: 065
     Dates: start: 20111125, end: 20111203
  10. DEXAMETHASONE. [Suspect]
     Active Substance: DEXAMETHASONE
     Dosage: 20 MG, QW
     Route: 048
     Dates: start: 20191227, end: 20200112
  11. NEORAL [Suspect]
     Active Substance: CYCLOSPORINE
     Indication: TRANSPLANT
     Dosage: 200 MG
     Route: 065
     Dates: start: 20111121
  12. NEORAL [Suspect]
     Active Substance: CYCLOSPORINE
     Dosage: 150 MG
     Route: 065
     Dates: start: 20111228
  13. ELTROXIN [Concomitant]
     Active Substance: LEVOTHYROXINE
     Dosage: 0.1 MG, QD
     Route: 048
     Dates: start: 20130206, end: 20130310
  14. NYSTATIN. [Concomitant]
     Active Substance: NYSTATIN
     Indication: INFECTION PROPHYLAXIS
     Dosage: 5000000 U, QID
     Route: 048
     Dates: start: 20111130, end: 20111201
  15. MEPERIDINE [Concomitant]
     Active Substance: MEPERIDINE
     Indication: PRODUCT USED FOR UNKNOWN INDICATION
     Dosage: 35 MG, Q12H PRN
     Route: 042
     Dates: start: 20120106, end: 20120109
  16. TRANDATE [Concomitant]
     Active Substance: LABETALOL HYDROCHLORIDE
     Indication: HYPERTENSION
     Dosage: 25 MG, Q4H PRN
     Route: 042
     Dates: start: 20111123, end: 20111128
  17. VYTORIN [Concomitant]
     Active Substance: EZETIMIBE\SIMVASTATIN
     Indication: PRODUCT USED FOR UNKNOWN INDICATION
     Dosage: 1 TAB, QN
     Route: 048
     Dates: start: 20120725, end: 20140619
  18. ZOPICLONE [Concomitant]
     Active Substance: ZOPICLONE
     Indication: INSOMNIA
     Dosage: 7.5 MG, HS
     Route: 048
     Dates: start: 20111121, end: 20120208
  19. DEXAMETHASONE. [Suspect]
     Active Substance: DEXAMETHASONE
     Dosage: 20 MG, QW
     Route: 048
     Dates: start: 20191207, end: 20191225
  20. REVLIMID [Suspect]
     Active Substance: LENALIDOMIDE
     Dosage: 15 MG, QD
     Route: 048
     Dates: start: 20191211, end: 20191231
  21. ELTROXIN [Concomitant]
     Active Substance: LEVOTHYROXINE
     Dosage: 0.2 UNK, UNK
     Route: 048
     Dates: start: 20130311
  22. ZOPIDEM [Concomitant]
     Active Substance: ZOLPIDEM TARTRATE
     Indication: INSOMNIA
     Dosage: 10 MG, QN
     Route: 048
     Dates: start: 20120208, end: 20120404
  23. ZOPICLONE [Concomitant]
     Active Substance: ZOPICLONE
     Dosage: 7.5 MG, HS
     Route: 048
     Dates: start: 20120412, end: 20121114
  24. NEORAL [Suspect]
     Active Substance: CYCLOSPORINE
     Dosage: 100 MG
     Route: 065
     Dates: start: 20120208
  25. REVLIMID [Suspect]
     Active Substance: LENALIDOMIDE
     Dosage: 10 MG, QD
     Route: 048
     Dates: start: 20200520
  26. ACETAMINOPHEN. [Concomitant]
     Active Substance: ACETAMINOPHEN
     Indication: UPPER RESPIRATORY TRACT INFECTION
     Dosage: 1 TAB, PRN
     Route: 048
     Dates: start: 20111205, end: 20111212
  27. BROWN MIXTURE [Concomitant]
     Dosage: 10 ML, TID
     Route: 048
     Dates: start: 20120108, end: 20120115
  28. CARVEDILOL. [Concomitant]
     Active Substance: CARVEDILOL
     Indication: HYPERTENSION
     Dosage: 25 MG, QD
     Route: 048
     Dates: start: 20111124, end: 20120103
  29. DEXAMETHASONE. [Suspect]
     Active Substance: DEXAMETHASONE
     Dosage: 10 MG, QW
     Route: 048
     Dates: start: 20200113
  30. REVLIMID [Suspect]
     Active Substance: LENALIDOMIDE
     Indication: PLASMA CELL MYELOMA
     Dosage: 25 MG, QD
     Route: 048
     Dates: start: 20190516, end: 20190606
  31. REVLIMID [Suspect]
     Active Substance: LENALIDOMIDE
     Dosage: 25 MG, QD
     Route: 048
     Dates: start: 20190613, end: 20190704
  32. REVLIMID [Suspect]
     Active Substance: LENALIDOMIDE
     Dosage: 25 MILLIGRAM
     Route: 048
     Dates: start: 20190808, end: 20190829
  33. REVLIMID [Suspect]
     Active Substance: LENALIDOMIDE
     Dosage: 15 MG, QD
     Route: 048
     Dates: start: 20200113, end: 20200202
  34. REVLIMID [Suspect]
     Active Substance: LENALIDOMIDE
     Dosage: 10 MG, QD
     Route: 065
     Dates: start: 20200227, end: 20200318
  35. REVLIMID [Suspect]
     Active Substance: LENALIDOMIDE
     Dosage: 10 MG, QD
     Route: 048
     Dates: start: 20200330
  36. ACETAMINOPHEN. [Concomitant]
     Active Substance: ACETAMINOPHEN
     Dosage: 500 MG, Q6H PRN
     Route: 048
     Dates: start: 20130418, end: 20130425
  37. BROWN MIXTURE [Concomitant]
     Indication: UPPER RESPIRATORY TRACT INFECTION
     Dosage: 10 ML, TID
     Route: 048
     Dates: start: 20111205, end: 20111212
  38. PANTOPRAZOLE [Concomitant]
     Active Substance: PANTOPRAZOLE
     Indication: PROPHYLAXIS
     Dosage: 40 MG, QD
     Route: 048
     Dates: start: 20111123, end: 20120308
  39. PANTOPRAZOLE [Concomitant]
     Active Substance: PANTOPRAZOLE
     Dosage: UNK
     Route: 065
  40. DEXAMETHASONE. [Suspect]
     Active Substance: DEXAMETHASONE
     Dosage: 20 MG, QW
     Route: 048
     Dates: start: 20191226, end: 20191226
  41. REVLIMID [Suspect]
     Active Substance: LENALIDOMIDE
     Dosage: 15 MG, QD
     Route: 048
     Dates: start: 20190711, end: 20190801
  42. BACIDE [Concomitant]
     Dosage: 1 TAB, QD
     Route: 065
     Dates: start: 20111125, end: 20120104
  43. BROWN MIXTURE [Concomitant]
     Dosage: 5 ML, TID
     Route: 048
     Dates: start: 20140206, end: 20140227
  44. CARVEDILOL. [Concomitant]
     Active Substance: CARVEDILOL
     Dosage: 6.25 MG, QD
     Route: 048
     Dates: start: 20121017, end: 20121114
  45. CEFADROXIL. [Concomitant]
     Active Substance: CEFADROXIL
     Indication: PRODUCT USED FOR UNKNOWN INDICATION
     Dosage: 500 MG, Q12H
     Route: 048
     Dates: start: 20120507, end: 20120510
  46. ELTROXIN [Concomitant]
     Active Substance: LEVOTHYROXINE
     Indication: HYPOTHYROIDISM
     Dosage: 0.1 MG, QD
     Route: 048
     Dates: start: 20111121, end: 20121114
  47. NORVASC [Concomitant]
     Active Substance: AMLODIPINE BESYLATE
     Dosage: 5 MG, QD
     Route: 048
     Dates: start: 20130418, end: 20140619
  48. ULTRACET [Concomitant]
     Active Substance: ACETAMINOPHEN\TRAMADOL HYDROCHLORIDE
     Dosage: 1 DF, Q6H (1 TAB, Q6H PR)
     Route: 065
     Dates: start: 20111215, end: 20111222
  49. TRIAMCINOLONE ORAL JEL [Concomitant]
     Indication: MOUTH ULCERATION
     Dosage: UNK
     Route: 061
     Dates: start: 20140923
  50. VALCYTE [Concomitant]
     Active Substance: VALGANCICLOVIR HYDROCHLORIDE
     Indication: INFECTION PROPHYLAXIS
     Dosage: 450 MG, Q2D
     Route: 048
     Dates: start: 20111120, end: 20111123
  51. REVLIMID [Suspect]
     Active Substance: LENALIDOMIDE
     Dosage: 20 MG, QD
     Route: 048
     Dates: start: 20191226, end: 20191226
  52. AMPICILLIN [Concomitant]
     Active Substance: AMPICILLIN
     Indication: PRODUCT USED FOR UNKNOWN INDICATION
     Dosage: 500 MG, Q6H
     Route: 048
     Dates: start: 20120220, end: 20120227
  53. VITAMIN B COMPLEX [Concomitant]
     Active Substance: CYANOCOBALAMIN\DEXPANTHENOL\NIACINAMIDE\PYRIDOXINE HYDROCHLORIDE\RIBOFLAVIN 5^-PHOSPHATE SODIUM\THIAMINE HYDROCHLORIDE\VITAMIN B COMPLEX
     Indication: MOUTH ULCERATION
     Dosage: 2 TAB, QD
     Route: 048
     Dates: start: 20120912, end: 20130119
  54. VITAMIN B COMPLEX [Concomitant]
     Active Substance: CYANOCOBALAMIN\DEXPANTHENOL\NIACINAMIDE\PYRIDOXINE HYDROCHLORIDE\RIBOFLAVIN 5^-PHOSPHATE SODIUM\THIAMINE HYDROCHLORIDE\VITAMIN B COMPLEX
     Dosage: 1 TAB, QD
     Route: 065
     Dates: start: 20130807
  55. BROWN MIXTURE [Concomitant]
     Dosage: 10 ML, TID
     Route: 048
     Dates: start: 20130311, end: 20130318
  56. CARVEDILOL. [Concomitant]
     Active Substance: CARVEDILOL
     Dosage: 6.25 MG, QD
     Route: 048
     Dates: start: 20120104, end: 20120620
  57. PARMASON [Concomitant]
     Dosage: BID
     Route: 049
     Dates: start: 20130418
  58. NORVASC [Concomitant]
     Active Substance: AMLODIPINE BESYLATE
     Indication: HYPERTENSION
     Dosage: 5 MG, QD
     Route: 048
     Dates: start: 20111122, end: 20111228
  59. ROSUVASTATIN. [Concomitant]
     Active Substance: ROSUVASTATIN
     Indication: PRODUCT USED FOR UNKNOWN INDICATION
     Dosage: 10 MG, QD
     Route: 048
     Dates: start: 20120502, end: 20120725
  60. ZOPICLONE [Concomitant]
     Active Substance: ZOPICLONE
     Dosage: 7.5 MG, HS
     Route: 048
     Dates: start: 20130109, end: 20131031
  61. DEXAMETHASONE. [Suspect]
     Active Substance: DEXAMETHASONE
     Indication: PLASMA CELL MYELOMA
     Dosage: 20 MG, QW
     Route: 048
     Dates: start: 20190516, end: 20190903
  62. DEXAMETHASONE. [Suspect]
     Active Substance: DEXAMETHASONE
     Dosage: 10 MG, QW
     Route: 048
     Dates: start: 20200207
  63. VITAMIN B COMPLEX [Concomitant]
     Active Substance: CYANOCOBALAMIN\DEXPANTHENOL\NIACINAMIDE\PYRIDOXINE HYDROCHLORIDE\RIBOFLAVIN 5^-PHOSPHATE SODIUM\THIAMINE HYDROCHLORIDE\VITAMIN B COMPLEX
     Dosage: 1 TAB, QD
     Route: 065
     Dates: start: 20130313, end: 20130610
  64. DEXAMETHASONE ORAL PASTE [Concomitant]
     Indication: MOUTH ULCERATION
     Dosage: UNK UNK, BID
     Route: 061
     Dates: start: 20120912, end: 20121114
  65. DOXABEN [Concomitant]
     Active Substance: DOXAZOSIN MESYLATE
     Indication: HYPERTENSION
     Dosage: 4 MG, QD
     Route: 048
     Dates: start: 20111124, end: 20111126
  66. LORAZEPAM. [Concomitant]
     Active Substance: LORAZEPAM
     Indication: PRODUCT USED FOR UNKNOWN INDICATION
     Dosage: 1 MG, QN
     Route: 048
     Dates: start: 20131128
  67. PARMASON [Concomitant]
     Indication: INFECTION PROPHYLAXIS
     Dosage: BID
     Route: 049
     Dates: start: 20111205, end: 20111212
  68. MEPERIDINE [Concomitant]
     Active Substance: MEPERIDINE
     Dosage: UNK
     Route: 065
  69. PRAVASTATIN. [Concomitant]
     Active Substance: PRAVASTATIN
     Indication: PRODUCT USED FOR UNKNOWN INDICATION
     Dosage: 40 MG, QN
     Route: 048
     Dates: start: 20140717
  70. OLMESARTAN MEDOXOMIL. [Concomitant]
     Active Substance: OLMESARTAN MEDOXOMIL
     Indication: HYPERTENSION
     Dosage: 20 MG, QD
     Route: 048
     Dates: start: 20140717
  71. VALCYTE [Concomitant]
     Active Substance: VALGANCICLOVIR HYDROCHLORIDE
     Dosage: 450 MG, QD
     Route: 048
     Dates: start: 20111124, end: 20120105

REACTIONS (11)
  - Cough [Recovered/Resolved]
  - Neutropenia [Recovered/Resolved]
  - Vaginal infection [Not Recovered/Not Resolved]
  - Thrombocytopenia [Recovering/Resolving]
  - Anaemia [Not Recovered/Not Resolved]
  - Cough [Not Recovered/Not Resolved]
  - Neutropenia [Recovered/Resolved]
  - Neutropenia [Recovered/Resolved]
  - Spinal disorder [Recovered/Resolved]
  - Haematotoxicity [Not Recovered/Not Resolved]
  - Productive cough [Not Recovered/Not Resolved]

NARRATIVE: CASE EVENT DATE: 20130206
